FAERS Safety Report 9665430 (Version 2)
Quarter: 2013Q4

REPORT INFORMATION
  Report Type: Spontaneous
  Country: JP (occurrence: JP)
  Receive Date: 20131104
  Receipt Date: 20131104
  Transmission Date: 20140711
  Serious: Yes (Other)
  Sender: FDA-Public Use
  Company Number: JP-ROCHE-1094246

PATIENT
  Age: 43 Year
  Sex: Female

DRUGS (1)
  1. ACTEMRA [Suspect]
     Indication: RHEUMATOID ARTHRITIS
     Route: 042

REACTIONS (7)
  - Retinal haemorrhage [Recovered/Resolved]
  - Generalised erythema [Recovered/Resolved]
  - Infected skin ulcer [Recovered/Resolved]
  - Retinal exudates [Recovered/Resolved]
  - Retinal exudates [Recovered/Resolved]
  - Skin infection [Recovered/Resolved]
  - Rash [Recovered/Resolved]
